FAERS Safety Report 9717031 (Version 1)
Quarter: 2013Q4

REPORT INFORMATION
  Report Type: Spontaneous
  Country: US (occurrence: US)
  Receive Date: 20131127
  Receipt Date: 20131127
  Transmission Date: 20140711
  Serious: No
  Sender: FDA-Public Use
  Company Number: US-GILEAD-2009-0020669

PATIENT
  Sex: Male
  Weight: 119.29 kg

DRUGS (15)
  1. LETAIRIS [Suspect]
     Indication: PULMONARY ARTERIAL HYPERTENSION
     Route: 048
     Dates: start: 20090218
  2. BENICAR [Concomitant]
  3. NITROQUICK [Concomitant]
  4. RANEXA [Concomitant]
  5. PROVENTIL [Concomitant]
  6. ADVAIR [Concomitant]
  7. LYRICA [Concomitant]
  8. ATROPINE [Concomitant]
  9. LIPITOR [Concomitant]
  10. ALBUTEROL [Concomitant]
  11. PROTONIX [Concomitant]
  12. FLOMAX [Concomitant]
  13. AMPICILLIN [Concomitant]
  14. HORIZON NASAL [Concomitant]
  15. MUCINEX [Concomitant]

REACTIONS (1)
  - Oedema peripheral [Unknown]
